FAERS Safety Report 8512208 (Version 2)
Quarter: 2013Q3

REPORT INFORMATION
  Report Type: Spontaneous
  Country: US (occurrence: US)
  Receive Date: 20120413
  Receipt Date: 20130924
  Transmission Date: 20140515
  Serious: No
  Sender: FDA-Public Use
  Company Number: US-ASTRAZENECA-2011SE66525

PATIENT
  Age: 41 Year
  Sex: Male
  Weight: 68.5 kg

DRUGS (6)
  1. NEXIUM [Suspect]
     Indication: ULCER
     Route: 048
  2. NEXIUM [Suspect]
     Indication: GASTROOESOPHAGEAL REFLUX DISEASE
     Route: 048
  3. NEXIUM [Suspect]
     Indication: ULCER
     Route: 048
     Dates: start: 2009, end: 2012
  4. NEXIUM [Suspect]
     Indication: GASTROOESOPHAGEAL REFLUX DISEASE
     Route: 048
     Dates: start: 2009, end: 2012
  5. KLONOPIN [Concomitant]
     Indication: ANXIETY
  6. VICODIN [Concomitant]
     Indication: BACK PAIN

REACTIONS (8)
  - Pain [Unknown]
  - Gastrooesophageal reflux disease [Unknown]
  - Dyspepsia [Not Recovered/Not Resolved]
  - Stress [Unknown]
  - Weight decreased [Not Recovered/Not Resolved]
  - Abdominal pain upper [Unknown]
  - Off label use [Not Recovered/Not Resolved]
  - Drug dose omission [Unknown]
